FAERS Safety Report 17151343 (Version 8)
Quarter: 2025Q2

REPORT INFORMATION
  Report Type: Spontaneous
  Country: US (occurrence: US)
  Receive Date: 20191213
  Receipt Date: 20250417
  Transmission Date: 20250717
  Serious: Yes (Other)
  Sender: PFIZER
  Company Number: US-PFIZER INC-2019539245

PATIENT
  Age: 65 Year
  Sex: Female
  Weight: 63.5 kg

DRUGS (3)
  1. XELJANZ XR [Suspect]
     Active Substance: TOFACITINIB CITRATE
     Indication: Arthritis
     Dosage: 11 MG, 1X/DAY
  2. XELJANZ XR [Suspect]
     Active Substance: TOFACITINIB CITRATE
     Indication: Rheumatoid arthritis
  3. LOSARTAN [Concomitant]
     Active Substance: LOSARTAN
     Indication: Hypertension

REACTIONS (10)
  - Type 2 diabetes mellitus [Unknown]
  - Respiratory tract infection [Unknown]
  - Off label use [Unknown]
  - Infection [Unknown]
  - Pain [Unknown]
  - Illness [Unknown]
  - Bone density decreased [Unknown]
  - Urinary tract infection [Unknown]
  - Peripheral swelling [Unknown]
  - Arthralgia [Unknown]
